FAERS Safety Report 9981098 (Version 2)
Quarter: 2014Q1

REPORT INFORMATION
  Report Type: Spontaneous
  Country: US (occurrence: US)
  Receive Date: 20140307
  Receipt Date: 20140319
  Transmission Date: 20141002
  Serious: No
  Sender: FDA-Public Use
  Company Number: US-PFIZER INC-2014063865

PATIENT
  Age: 69 Year
  Sex: Female

DRUGS (2)
  1. LISINOPRIL [Suspect]
     Dosage: UNK
  2. INDERAL [Suspect]
     Dosage: UNK
     Route: 048
     Dates: start: 1984

REACTIONS (1)
  - Drug hypersensitivity [Unknown]
